FAERS Safety Report 8419235-6 (Version None)
Quarter: 2012Q2

REPORT INFORMATION
  Report Type: 
  Country: None (occurrence: None)
  Receive Date: 20120601
  Receipt Date: 20120513
  Transmission Date: 20120825
  Serious: Yes (Hospitalization, Other)
  Sender: FDA-Public Use
  Company Number: 12-391

PATIENT
  Age: 64 Year
  Sex: Female
  Weight: 102.0593 kg

DRUGS (8)
  1. LYRICA [Concomitant]
  2. CYMBALTA [Concomitant]
  3. ADVAIR HFA [Concomitant]
  4. PERCOCET [Concomitant]
  5. OXYCONTIN [Concomitant]
  6. ATARAX [Concomitant]
  7. ELVAIL (AMITRIPTYLINE HYDROCHLORIDE) [Concomitant]
  8. ALEVE [Suspect]
     Indication: ARTHRITIS
     Dosage: 2 / PRN / ORAL
     Route: 048
     Dates: start: 20111101, end: 20111223

REACTIONS (6)
  - VOMITING [None]
  - RENAL FAILURE [None]
  - GENERALISED OEDEMA [None]
  - ERYTHEMA [None]
  - DYSPNOEA [None]
  - BLOOD PRESSURE DECREASED [None]
